FAERS Safety Report 18972469 (Version 2)
Quarter: 2021Q2

REPORT INFORMATION
  Report Type: Spontaneous
  Country: JP (occurrence: JP)
  Receive Date: 20210305
  Receipt Date: 20210608
  Transmission Date: 20210717
  Serious: Yes (Other)
  Sender: FDA-Public Use
  Company Number: NVSJ2021JP003283

PATIENT

DRUGS (2)
  1. TAFINLAR [Suspect]
     Active Substance: DABRAFENIB MESYLATE
     Indication: MALIGNANT MELANOMA
     Dosage: 300 MG
     Route: 048
     Dates: start: 20210220
  2. MEKINIST [Suspect]
     Active Substance: TRAMETINIB DIMETHYL SULFOXIDE
     Indication: MALIGNANT MELANOMA
     Dosage: 2 MG
     Route: 048
     Dates: start: 20210220

REACTIONS (1)
  - Blood pressure increased [Unknown]

NARRATIVE: CASE EVENT DATE: 20210225
